FAERS Safety Report 6400759-8 (Version None)
Quarter: 2009Q4

REPORT INFORMATION
  Report Type: 
  Country: None (occurrence: None)
  Receive Date: 20091014
  Receipt Date: 20091007
  Transmission Date: 20100525
  Serious: Yes (Other)
  Sender: FDA-Public Use
  Company Number: DE-AMGEN-UK364859

PATIENT
  Sex: Female

DRUGS (8)
  1. ROMIPLOSTIM [Suspect]
     Indication: IDIOPATHIC THROMBOCYTOPENIC PURPURA
     Route: 058
     Dates: start: 20070808
  2. VERAPAMIL [Concomitant]
  3. INSULIN [Concomitant]
  4. ALLOPURINOL [Concomitant]
  5. SPIRONOLACTONE [Concomitant]
  6. FUROSEMIDE [Concomitant]
  7. DIGITOXIN INJ [Concomitant]
  8. GABAPENTIN [Concomitant]

REACTIONS (2)
  - PERIODONTITIS [None]
  - TOOTH LOSS [None]
